FAERS Safety Report 19440324 (Version 2)
Quarter: 2021Q2

REPORT INFORMATION
  Report Type: Report from Study
  Country: US (occurrence: US)
  Receive Date: 20210621
  Receipt Date: 20210622
  Transmission Date: 20210717
  Serious: Yes (Hospitalization)
  Sender: FDA-Public Use
  Company Number: US-JNJFOC-20210634717

PATIENT
  Age: 7 Year
  Sex: Female

DRUGS (10)
  1. INFLIXIMAB, RECOMBINANT [Suspect]
     Active Substance: INFLIXIMAB
     Indication: INFLAMMATORY BOWEL DISEASE
     Route: 042
     Dates: start: 20160716, end: 20170330
  2. LOPERAMIDE [Concomitant]
     Active Substance: LOPERAMIDE
  3. ILARIS [Concomitant]
     Active Substance: CANAKINUMAB
     Indication: INFLAMMATORY BOWEL DISEASE
  4. XELJANZ [Concomitant]
     Active Substance: TOFACITINIB CITRATE
     Indication: INFLAMMATORY BOWEL DISEASE
  5. BENEFIBER [Concomitant]
     Active Substance: STARCH, WHEAT
  6. ZOMACTON [Concomitant]
     Active Substance: SOMATROPIN
  7. COLESEVELAM HCL [Concomitant]
     Active Substance: COLESEVELAM HYDROCHLORIDE
  8. GLYCERIN [GLYCEROL] [Concomitant]
     Active Substance: GLYCERIN
     Route: 054
  9. ZINC GLUCONATE [Concomitant]
     Active Substance: ZINC GLUCONATE
  10. IBUPROFEN. [Concomitant]
     Active Substance: IBUPROFEN

REACTIONS (1)
  - Dehydration [Recovered/Resolved]

NARRATIVE: CASE EVENT DATE: 20210606
